FAERS Safety Report 5757928-X (Version None)
Quarter: 2008Q2

REPORT INFORMATION
  Report Type: 
  Country: None (occurrence: None)
  Receive Date: 20080602
  Receipt Date: 20080602
  Transmission Date: 20081010
  Serious: Yes (Other)
  Sender: FDA-Public Use
  Company Number: None

PATIENT
  Age: 14 Year
  Sex: Female
  Weight: 72.5755 kg

DRUGS (2)
  1. SINGULAIR [Suspect]
     Indication: ASTHMA
     Dosage: ONE MORNING PO
     Route: 048
     Dates: start: 20061115, end: 20080529
  2. SINGULAIR [Suspect]
     Indication: MULTIPLE ALLERGIES
     Dosage: ONE MORNING PO
     Route: 048
     Dates: start: 20061115, end: 20080529

REACTIONS (12)
  - AGGRESSION [None]
  - ANGER [None]
  - CHOKING [None]
  - DEPRESSION [None]
  - EATING DISORDER [None]
  - FEAR [None]
  - FEELING ABNORMAL [None]
  - IMPULSE-CONTROL DISORDER [None]
  - INSOMNIA [None]
  - NIGHTMARE [None]
  - PARANOIA [None]
  - SELF INJURIOUS BEHAVIOUR [None]
